FAERS Safety Report 25706018 (Version 2)
Quarter: 2025Q3

REPORT INFORMATION
  Report Type: Report from Study
  Country: US (occurrence: US)
  Receive Date: 20250820
  Receipt Date: 20250826
  Transmission Date: 20251020
  Serious: Yes (Hospitalization)
  Sender: GILEAD
  Company Number: US-GILEAD-2025-0723290

PATIENT
  Age: 46 Year
  Sex: Female

DRUGS (7)
  1. AMBRISENTAN [Suspect]
     Active Substance: AMBRISENTAN
     Indication: Pulmonary arterial hypertension
     Dosage: 10 MG, QD
     Route: 048
     Dates: start: 201612
  2. AMBRISENTAN [Suspect]
     Active Substance: AMBRISENTAN
     Dosage: 10MG BY MOUTH 1 TIME A DAY
     Route: 048
     Dates: start: 201612
  3. ADEMPAS [Suspect]
     Active Substance: RIOCIGUAT
     Indication: Pulmonary arterial hypertension
     Dosage: 2.5MG BY MOUTH 3 TIMES A DAY
     Route: 048
     Dates: start: 202502
  4. REMODULIN [Suspect]
     Active Substance: TREPROSTINIL
     Indication: Pulmonary arterial hypertension
     Route: 058
     Dates: start: 202111
  5. REMODULIN [Suspect]
     Active Substance: TREPROSTINIL
     Route: 042
  6. WINREVAIR [Concomitant]
     Active Substance: SOTATERCEPT-CSRK
  7. OPSUMIT [Concomitant]
     Active Substance: MACITENTAN

REACTIONS (4)
  - Vomiting [Recovering/Resolving]
  - Headache [Not Recovered/Not Resolved]
  - Dyspnoea exertional [Not Recovered/Not Resolved]
  - Oedema peripheral [Not Recovered/Not Resolved]
